FAERS Safety Report 7704871-2 (Version None)
Quarter: 2011Q3

REPORT INFORMATION
  Report Type: 
  Country: None (occurrence: None)
  Receive Date: 20110823
  Receipt Date: 20110808
  Transmission Date: 20111222
  Serious: Yes (Death, Other)
  Sender: FDA-Public Use
  Company Number: IN-WATSON-2011-13164

PATIENT
  Age: 47 Year
  Sex: Female

DRUGS (5)
  1. TAMOXIFEN CITRATE [Suspect]
     Indication: BREAST CANCER
     Dosage: UNK
     Route: 048
  2. CYCLOPHOSPHAMIDE [Suspect]
     Indication: BREAST CANCER
     Dosage: 4 CYCLES OVER 4 MONTHS
  3. EPIRUBICIN [Suspect]
     Indication: BREAST CANCER
     Dosage: 4 CYCLES OVER 4 MONTHS
  4. FLUOROURACIL [Suspect]
     Indication: BREAST CANCER
     Dosage: 4 CYCLES OVER 4 MONTHS
  5. PACLITAXEL [Suspect]
     Indication: BREAST CANCER
     Dosage: FOUR CYCLES

REACTIONS (2)
  - MYELODYSPLASTIC SYNDROME [None]
  - REFRACTORY ANAEMIA [None]
